FAERS Safety Report 13422335 (Version 1)
Quarter: 2017Q2

REPORT INFORMATION
  Report Type: Spontaneous
  Country: US (occurrence: US)
  Receive Date: 20170408
  Receipt Date: 20170408
  Transmission Date: 20170830
  Serious: Yes (Other)
  Sender: FDA-Public Use
  Company Number: None

PATIENT
  Age: 69 Year
  Sex: Female
  Weight: 94.5 kg

DRUGS (19)
  1. BABY ASPIRIN [Concomitant]
     Active Substance: ASPIRIN
  2. LISINOPRIL. [Concomitant]
     Active Substance: LISINOPRIL
  3. CELEXA [Concomitant]
     Active Substance: CITALOPRAM HYDROBROMIDE
  4. VITAMIN D [Concomitant]
     Active Substance: CHOLECALCIFEROL
  5. VENTOLIN [Concomitant]
     Active Substance: ALBUTEROL SULFATE
  6. B12 SHOTS [Concomitant]
     Active Substance: CYANOCOBALAMIN
  7. GLYPIZIDE [Concomitant]
     Active Substance: GLIPIZIDE
  8. REMICADE [Suspect]
     Active Substance: INFLIXIMAB
     Indication: CROHN^S DISEASE
     Route: 042
     Dates: start: 20170323, end: 20170405
  9. TOUJEO FLEXPEN [Concomitant]
  10. ATENOLOL. [Concomitant]
     Active Substance: ATENOLOL
  11. BIOTIN [Concomitant]
     Active Substance: BIOTIN
  12. SIMVASTATIN. [Concomitant]
     Active Substance: SIMVASTATIN
  13. LEVOTHYROXINE. [Concomitant]
     Active Substance: LEVOTHYROXINE
  14. LOMOTIL [Concomitant]
     Active Substance: ATROPINE SULFATE\DIPHENOXYLATE HYDROCHLORIDE
  15. BALSALAZIDE DISODIUM. [Concomitant]
     Active Substance: BALSALAZIDE DISODIUM
  16. VICTOZA [Concomitant]
     Active Substance: LIRAGLUTIDE
  17. MERCAPTOPURINE. [Concomitant]
     Active Substance: MERCAPTOPURINE
  18. MULTIVITAMIN [Concomitant]
     Active Substance: VITAMINS
  19. IRON [Concomitant]
     Active Substance: IRON

REACTIONS (2)
  - Muscle spasms [None]
  - Myalgia [None]

NARRATIVE: CASE EVENT DATE: 20170405
